FAERS Safety Report 23228473 (Version 1)
Quarter: 2023Q4

REPORT INFORMATION
  Report Type: Spontaneous
  Country: AT (occurrence: AT)
  Receive Date: 20231125
  Receipt Date: 20231125
  Transmission Date: 20240110
  Serious: Yes (Death)
  Sender: FDA-Public Use
  Company Number: AT-AMGEN-AUTSP2023210003

PATIENT
  Sex: Female

DRUGS (6)
  1. LUMAKRAS [Suspect]
     Active Substance: SOTORASIB
     Indication: Colorectal cancer metastatic
     Dosage: 240 MILLIGRAM, QD
     Route: 065
     Dates: start: 20230622, end: 2023
  2. LUMAKRAS [Suspect]
     Active Substance: SOTORASIB
     Indication: K-ras gene mutation
  3. PANITUMUMAB [Suspect]
     Active Substance: PANITUMUMAB
     Indication: Colorectal cancer metastatic
     Dosage: UNK
     Route: 065
     Dates: start: 2023, end: 2023
  4. PANITUMUMAB [Suspect]
     Active Substance: PANITUMUMAB
     Indication: K-ras gene mutation
  5. FLUOROURACIL\IRINOTECAN\LEUCOVORIN [Suspect]
     Active Substance: FLUOROURACIL\IRINOTECAN\LEUCOVORIN
     Indication: Colorectal cancer metastatic
     Dosage: UNK
     Route: 065
     Dates: start: 2023, end: 2023
  6. FLUOROURACIL\IRINOTECAN\LEUCOVORIN [Suspect]
     Active Substance: FLUOROURACIL\IRINOTECAN\LEUCOVORIN
     Indication: K-ras gene mutation

REACTIONS (2)
  - Death [Fatal]
  - Off label use [Unknown]

NARRATIVE: CASE EVENT DATE: 20230101
